FAERS Safety Report 24311623 (Version 1)
Quarter: 2024Q3

REPORT INFORMATION
  Report Type: Spontaneous
  Country: US (occurrence: US)
  Receive Date: 20240912
  Receipt Date: 20240912
  Transmission Date: 20241017
  Serious: No
  Sender: ABBVIE
  Company Number: US-ABBVIE-5917079

PATIENT

DRUGS (2)
  1. RESTASIS [Suspect]
     Active Substance: CYCLOSPORINE
     Indication: Dry eye
     Dosage: TOOK THE EVENING DOSE
     Route: 047
     Dates: start: 20240907
  2. RESTASIS [Suspect]
     Active Substance: CYCLOSPORINE
     Dosage: DID NOT USE THE MORNING DOSE
     Route: 047
     Dates: start: 202405, end: 20240907

REACTIONS (3)
  - Insomnia [Unknown]
  - Eye pain [Unknown]
  - Eye disorder [Unknown]

NARRATIVE: CASE EVENT DATE: 20240101
